FAERS Safety Report 5094174-X (Version None)
Quarter: 2006Q3

REPORT INFORMATION
  Report Type: 
  Country: None (occurrence: None)
  Receive Date: 20060830
  Receipt Date: 20060811
  Transmission Date: 20061208
  Serious: Yes (Other)
  Sender: FDA-Public Use
  Company Number: GB200608002603

PATIENT
  Age: 14 Year
  Sex: Male
  Weight: 42.6 kg

DRUGS (1)
  1. STRATTERA [Suspect]
     Indication: PSYCHOMOTOR HYPERACTIVITY
     Dosage: 20 MG, ORAL
     Route: 048
     Dates: start: 20060426, end: 20060515

REACTIONS (3)
  - AGGRESSION [None]
  - AGITATION [None]
  - PSYCHOMOTOR HYPERACTIVITY [None]
